FAERS Safety Report 25077333 (Version 1)
Quarter: 2025Q1

REPORT INFORMATION
  Report Type: Spontaneous
  Country: NL (occurrence: NL)
  Receive Date: 20250314
  Receipt Date: 20250314
  Transmission Date: 20250408
  Serious: Yes (Hospitalization, Other)
  Sender: LEO PHARM
  Company Number: None

PATIENT
  Age: 69 Year
  Sex: Female
  Weight: 79 kg

DRUGS (3)
  1. CALCIPOTRIENE [Suspect]
     Active Substance: CALCIPOTRIENE
     Indication: Precancerous skin lesion
     Route: 003
     Dates: start: 20250114, end: 20250127
  2. CALCIPOTRIENE [Suspect]
     Active Substance: CALCIPOTRIENE
     Indication: Precancerous skin lesion
     Route: 003
     Dates: start: 20250114, end: 20250127
  3. FLUOROURACIL [Suspect]
     Active Substance: FLUOROURACIL
     Indication: Precancerous skin lesion
     Route: 003
     Dates: start: 20250114, end: 20250127

REACTIONS (3)
  - Oesophageal intramural haematoma [Recovering/Resolving]
  - Pruritus [Recovering/Resolving]
  - Blister [Recovering/Resolving]
